FAERS Safety Report 21222041 (Version 1)
Quarter: 2022Q3

REPORT INFORMATION
  Report Type: Spontaneous
  Country: US (occurrence: US)
  Receive Date: 20220817
  Receipt Date: 20220817
  Transmission Date: 20221027
  Serious: Yes (Other)
  Sender: FDA-Public Use
  Company Number: US-SA-SAC20220811001595

PATIENT
  Age: 63 Year

DRUGS (1)
  1. ZANTAC [Suspect]
     Active Substance: RANITIDINE HYDROCHLORIDE
     Indication: Dyspepsia
     Dosage: UNK, QD
     Dates: start: 201001, end: 202012

REACTIONS (3)
  - Breast cancer [Unknown]
  - Lung neoplasm malignant [Unknown]
  - Metastases to spine [Unknown]

NARRATIVE: CASE EVENT DATE: 20120101
